FAERS Safety Report 7426832-3 (Version None)
Quarter: 2011Q2

REPORT INFORMATION
  Report Type: 
  Country: None (occurrence: None)
  Receive Date: 20110420
  Receipt Date: 20110412
  Transmission Date: 20111010
  Serious: Yes (Hospitalization)
  Sender: FDA-Public Use
  Company Number: US-B.I. PHARMACEUTICALS,INC./RIDGEFIELD-2011-BP-04985BP

PATIENT
  Age: 81 Year
  Sex: Male

DRUGS (9)
  1. PRADAXA [Suspect]
     Indication: ATRIAL FIBRILLATION
     Dosage: 150 MG
     Route: 048
     Dates: start: 20110211, end: 20110216
  2. LANTUS [Concomitant]
  3. ISOSORBIDE MONONITRATE [Concomitant]
  4. CARVEDILOL [Concomitant]
  5. JANTOSEN [Concomitant]
  6. PRADAXA [Suspect]
     Indication: CARDIAC FAILURE CONGESTIVE
  7. AMLODIPINE BESYLATE AND BENAZEPRIL HCL [Concomitant]
  8. GLIMEPIRIDE [Concomitant]
     Dosage: 2 MG
  9. LIPITOR [Concomitant]

REACTIONS (4)
  - ANAEMIA [None]
  - MALAISE [None]
  - FEELING COLD [None]
  - HAEMATOCHEZIA [None]
